FAERS Safety Report 8324942-X (Version None)
Quarter: 2012Q2

REPORT INFORMATION
  Report Type: 
  Country: None (occurrence: None)
  Receive Date: 20120501
  Receipt Date: 20120417
  Transmission Date: 20120825
  Serious: Yes (Hospitalization)
  Sender: FDA-Public Use
  Company Number: JP-MYLANLABS-2012S1008071

PATIENT
  Age: 73 Year
  Sex: Female

DRUGS (3)
  1. THIAMAZOLE [Concomitant]
     Indication: HYPERTHYROIDISM
     Dosage: 5MG DAILY
     Route: 065
  2. LANSOPRAZOLE [Suspect]
     Indication: GASTROOESOPHAGEAL REFLUX DISEASE
     Dosage: 15MG DAILY
     Route: 065
  3. DISOPYRAMIDE [Interacting]
     Dosage: 300MG DAILY
     Route: 065

REACTIONS (4)
  - SINUS BRADYCARDIA [None]
  - ELECTROCARDIOGRAM QT PROLONGED [None]
  - DRUG INTERACTION [None]
  - TORSADE DE POINTES [None]
